FAERS Safety Report 6152742-8 (Version None)
Quarter: 2009Q2

REPORT INFORMATION
  Report Type: 
  Country: None (occurrence: None)
  Receive Date: 20090409
  Receipt Date: 20090324
  Transmission Date: 20091009
  Serious: Yes (Hospitalization)
  Sender: FDA-Public Use
  Company Number: 8044295

PATIENT
  Sex: Female
  Weight: 118.3 kg

DRUGS (7)
  1. METADATE CD [Suspect]
     Indication: ASTHENIA
     Dosage: 10 MG /D PO
     Route: 048
     Dates: end: 20010101
  2. METADATE CD [Suspect]
     Indication: ASTHENIA
     Dosage: 30 MG /D PO
     Route: 048
     Dates: start: 20080101
  3. AMBIEN [Concomitant]
  4. LYRICA [Concomitant]
  5. NIZATIDINE [Concomitant]
  6. KLOR-CON [Concomitant]
  7. DIPHENHYDRAMITE [Concomitant]

REACTIONS (3)
  - DYSGEUSIA [None]
  - IRRITABLE BOWEL SYNDROME [None]
  - TUMOUR EXCISION [None]
